FAERS Safety Report 9423662 (Version 1)
Quarter: 2013Q3

REPORT INFORMATION
  Report Type: Spontaneous
  Country: GB (occurrence: GB)
  Receive Date: 20130726
  Receipt Date: 20130726
  Transmission Date: 20140515
  Serious: Yes (Hospitalization, Other)
  Sender: FDA-Public Use
  Company Number: GB-ROCHE-1250995

PATIENT
  Age: 44 Year
  Sex: Male
  Weight: 101.5 kg

DRUGS (8)
  1. RIBAVIRIN [Suspect]
     Indication: HEPATITIS C
     Route: 048
     Dates: start: 201204
  2. RIBAVIRIN [Suspect]
     Route: 048
     Dates: start: 201207, end: 20121029
  3. RIBAVIRIN [Suspect]
     Route: 048
  4. INCIVO [Suspect]
     Indication: HEPATITIS C
     Route: 065
     Dates: start: 201204, end: 20121029
  5. PEGINTERFERON ALFA-2B [Suspect]
     Indication: HEPATITIS C
     Route: 058
     Dates: start: 201204, end: 20121029
  6. FUROSEMIDE [Concomitant]
     Route: 065
  7. FUROSEMIDE [Concomitant]
     Route: 065
  8. SPIRONOLACTONE [Concomitant]
     Route: 065

REACTIONS (9)
  - Anaemia [Unknown]
  - Hepatocellular carcinoma [Unknown]
  - Condition aggravated [Unknown]
  - Fluid retention [Unknown]
  - International normalised ratio increased [Unknown]
  - Pruritus [Unknown]
  - Portal hypertensive gastropathy [Unknown]
  - Weight increased [Unknown]
  - Hepatic failure [Unknown]
